FAERS Safety Report 13375966 (Version 1)
Quarter: 2017Q1

REPORT INFORMATION
  Report Type: Spontaneous
  Country: US (occurrence: US)
  Receive Date: 20170328
  Receipt Date: 20170328
  Transmission Date: 20170429
  Serious: Yes (Life-Threatening, Other)
  Sender: FDA-Public Use
  Company Number: US-ROCHE-1911785

PATIENT
  Age: 70 Year
  Sex: Female

DRUGS (4)
  1. OXALIPLATIN. [Concomitant]
     Active Substance: OXALIPLATIN
     Route: 065
  2. 5-FU [Concomitant]
     Active Substance: FLUOROURACIL
     Route: 065
  3. LEUCOVORIN. [Concomitant]
     Active Substance: LEUCOVORIN
  4. AVASTIN [Suspect]
     Active Substance: BEVACIZUMAB
     Indication: COLON CANCER
     Dosage: RECEIVED 12 CYCLES
     Route: 065

REACTIONS (3)
  - Mental status changes [Not Recovered/Not Resolved]
  - Wheelchair user [Unknown]
  - Posterior reversible encephalopathy syndrome [Not Recovered/Not Resolved]
